FAERS Safety Report 10162384 (Version 1)
Quarter: 2014Q2

REPORT INFORMATION
  Report Type: Spontaneous
  Country: GB (occurrence: None)
  Receive Date: 20140507
  Receipt Date: 20140507
  Transmission Date: 20141212
  Serious: Yes (Other)
  Sender: FDA-Public Use
  Company Number: AUR-APL-2014-05265

PATIENT
  Age: 62 Year
  Sex: 0

DRUGS (7)
  1. SIMVASTATIN (SIMVASTATIN) [Suspect]
     Indication: PRODUCT USED FOR UNKNOWN INDICATION
  2. CLOPIDOGREL (CLOPIDOGREL) [Concomitant]
  3. HYDROCOBALMIN (HYDROCOBALMIN) [Concomitant]
  4. LISINOPRIL (LISINOPRIL) [Concomitant]
  5. MIRTAZAPINE (MIRTAZAPINE) [Concomitant]
  6. SERTRALINE (SERTRALINE) [Concomitant]
  7. VENLAFAXINE (VENLAFAXINE) [Concomitant]

REACTIONS (1)
  - Loss of consciousness [None]
